FAERS Safety Report 7993251-0 (Version None)
Quarter: 2011Q4

REPORT INFORMATION
  Report Type: 
  Country: None (occurrence: None)
  Receive Date: 20111219
  Receipt Date: 20110804
  Transmission Date: 20120403
  Serious: No
  Sender: FDA-Public Use
  Company Number: US-ASTRAZENECA-2011SE46764

PATIENT
  Age: 84 Year
  Sex: Female

DRUGS (8)
  1. DIOVAN [Concomitant]
  2. PLAVIX [Concomitant]
  3. CRESTOR [Suspect]
     Indication: HYPERCHOLESTEROLAEMIA
     Route: 048
     Dates: start: 20110726
  4. ASPIRIN [Concomitant]
  5. LIDODERM [Concomitant]
     Indication: PAIN
  6. CALCIUM [Concomitant]
  7. ATENOLOL [Concomitant]
  8. VITAMIN D [Concomitant]

REACTIONS (1)
  - BACK PAIN [None]
